APPROVED DRUG PRODUCT: METHYLPHENIDATE HYDROCHLORIDE
Active Ingredient: METHYLPHENIDATE HYDROCHLORIDE
Strength: 18MG
Dosage Form/Route: TABLET, EXTENDED RELEASE;ORAL
Application: A207515 | Product #001
Applicant: AMNEAL PHARMACEUTICALS OF NEW YORK LLC
Approved: Feb 1, 2018 | RLD: No | RS: No | Type: DISCN